FAERS Safety Report 25911658 (Version 2)
Quarter: 2025Q4

REPORT INFORMATION
  Report Type: Spontaneous
  Country: EU (occurrence: EU)
  Receive Date: 20251013
  Receipt Date: 20251103
  Transmission Date: 20260117
  Serious: Yes (Other)
  Sender: ROCHE
  Company Number: EU-ROCHE-RCA1870861

PATIENT
  Age: 66 Year
  Sex: Male

DRUGS (5)
  1. MYCOPHENOLATE MOFETIL [Suspect]
     Active Substance: MYCOPHENOLATE MOFETIL
     Indication: Immunosuppression
     Route: 065
     Dates: start: 2009
  2. MYCOPHENOLATE MOFETIL [Suspect]
     Active Substance: MYCOPHENOLATE MOFETIL
     Dosage: 750 MG, PER DAY
     Route: 065
  3. PREDNISOLONE [Suspect]
     Active Substance: PREDNISOLONE
     Indication: Immunosuppression
     Dosage: 5 MG, PER DAY
     Route: 065
     Dates: start: 2009
  4. TACROLIMUS [Suspect]
     Active Substance: TACROLIMUS
     Indication: Immunosuppression
     Dosage: 12 MG, PER DAY
     Route: 065
  5. TACROLIMUS [Suspect]
     Active Substance: TACROLIMUS
     Dosage: 12 MG, PER DAY
     Route: 065
     Dates: start: 2009

REACTIONS (8)
  - Systemic mycosis [Recovered/Resolved]
  - Phaeohyphomycosis [Recovered/Resolved]
  - Dermatitis [Recovered/Resolved]
  - Hyperkeratosis [Recovered/Resolved]
  - Fungal skin infection [Recovered/Resolved]
  - Skin mass [Recovered/Resolved]
  - Skin papilloma [Recovered/Resolved]
  - Cutaneous T-cell lymphoma [Recovered/Resolved]
